FAERS Safety Report 8453870-4 (Version None)
Quarter: 2012Q2

REPORT INFORMATION
  Report Type: 
  Country: None (occurrence: None)
  Receive Date: 20120323
  Receipt Date: 20111121
  Transmission Date: 20120825
  Serious: Yes (Hospitalization, Other)
  Sender: FDA-Public Use
  Company Number: 163-21880-11110389

PATIENT
  Age: 66 Year
  Sex: Female
  Weight: 57.1532 kg

DRUGS (4)
  1. REVLIMID [Suspect]
     Indication: MYELODYSPLASTIC SYNDROME
     Dosage: 10 MG, DAILY FOR 28 DAYS, PO
     Route: 048
     Dates: start: 20110929
  2. BLOOD (BLOOD AND RELATED PRODUCTS) [Concomitant]
  3. NEULASTA [Concomitant]
  4. ARANESP [Concomitant]

REACTIONS (2)
  - CELLULITIS [None]
  - ANAEMIA [None]
